FAERS Safety Report 11339771 (Version 1)
Quarter: 2015Q3

REPORT INFORMATION
  Report Type: Spontaneous
  Country: US (occurrence: None)
  Receive Date: 20150804
  Receipt Date: 20150804
  Transmission Date: 20151125
  Serious: Yes (Disabling, Other)
  Sender: FDA-Public Use
  Company Number: None

PATIENT
  Age: 8 Year
  Sex: Male
  Weight: 25.86 kg

DRUGS (6)
  1. FLUOXENTINE [Concomitant]
  2. ASTHMANEX [Concomitant]
  3. MONTELUKAST [Concomitant]
     Active Substance: MONTELUKAST SODIUM
  4. NASONEX [Concomitant]
     Active Substance: MOMETASONE FUROATE
  5. PROAIR/ALBUTEROL [Concomitant]
  6. MONTELUKAST SOD CHEW TABS [Suspect]
     Active Substance: MONTELUKAST SODIUM
     Indication: ASTHMA
     Route: 048
     Dates: start: 20130513, end: 20150727

REACTIONS (12)
  - Abnormal behaviour [None]
  - Depression [None]
  - Personality change [None]
  - Disturbance in attention [None]
  - Anger [None]
  - Thinking abnormal [None]
  - Psychomotor hyperactivity [None]
  - Mood swings [None]
  - Aggression [None]
  - Agitation [None]
  - Nightmare [None]
  - Suicidal ideation [None]

NARRATIVE: CASE EVENT DATE: 20150803
